FAERS Safety Report 4955727-X (Version None)
Quarter: 2006Q1

REPORT INFORMATION
  Report Type: 
  Country: None (occurrence: None)
  Receive Date: 20060328
  Receipt Date: 20060316
  Transmission Date: 20060701
  Serious: Yes (Hospitalization)
  Sender: FDA-Public Use
  Company Number: DE-ROCHE-440847

PATIENT
  Age: 65 Year
  Sex: Male
  Weight: 87 kg

DRUGS (22)
  1. INTERFERON ALFA-2A [Suspect]
     Indication: METASTATIC RENAL CELL CARCINOMA
     Route: 058
     Dates: start: 20050629, end: 20050822
  2. BLINDED BEVACIZUMAB [Suspect]
     Indication: METASTATIC RENAL CELL CARCINOMA
     Route: 042
     Dates: start: 20050629, end: 20050810
  3. INTERLEUKIN [Suspect]
     Route: 065
  4. FLUOROURACIL [Suspect]
     Route: 065
  5. DECORTIN H [Concomitant]
     Dates: start: 20050629, end: 20050810
  6. 1 CONCOMITANT DRUG [Concomitant]
     Dosage: DRUG NAME REPORTED AS ^ZOLIDAX^
     Dates: start: 20040915
  7. ALLO 300 [Concomitant]
     Dates: start: 19770915
  8. ALNA [Concomitant]
     Dates: start: 20050315
  9. DICLAC [Concomitant]
     Dates: start: 20040915
  10. LANITOP MITE [Concomitant]
     Dates: start: 19780915
  11. METOSTAD COMP [Concomitant]
     Dates: start: 19660615
  12. NOVALGIN [Concomitant]
     Dates: start: 20040915
  13. PANTOZOL [Concomitant]
     Dates: start: 20040915
  14. MCP [Concomitant]
     Dates: start: 20050824
  15. VERGENTAN [Concomitant]
     Dates: start: 20050629
  16. ZOFRAN [Concomitant]
     Dates: start: 20060206
  17. PANTHENOL SALBE [Concomitant]
     Dates: start: 20050824
  18. PROVIDE [Concomitant]
     Dosage: PROVIDE EXTRA DRINK (MIXED)
     Dates: start: 20050926, end: 20051015
  19. FRESUBIN [Concomitant]
     Dosage: FRESUBIN ENERGY DRINK MIXED
     Dates: start: 20050926, end: 20051015
  20. NOVAMINSULFON-RATIOPHARM [Concomitant]
     Dates: start: 20050824
  21. FORTECORTIN [Concomitant]
     Dates: start: 20051007, end: 20051115
  22. LASIX [Concomitant]
     Dates: start: 20051128, end: 20060115

REACTIONS (1)
  - CACHEXIA [None]
